FAERS Safety Report 6235512-1 (Version None)
Quarter: 2009Q2

REPORT INFORMATION
  Report Type: 
  Country: None (occurrence: None)
  Receive Date: 20090618
  Receipt Date: 20080627
  Transmission Date: 20091009
  Serious: No
  Sender: FDA-Public Use
  Company Number: US-ASTRAZENECA-2008UW12965

PATIENT
  Age: 70 Year
  Sex: Male
  Weight: 61.2 kg

DRUGS (6)
  1. RHINOCORT [Suspect]
     Indication: HYPERSENSITIVITY
     Route: 045
  2. MICARDIS [Concomitant]
  3. LIPITOR [Concomitant]
  4. ZOSYN [Concomitant]
  5. ASPIRIN [Concomitant]
  6. ALLEGRA [Concomitant]

REACTIONS (1)
  - PSYCHOMOTOR HYPERACTIVITY [None]
